FAERS Safety Report 6692339-4 (Version None)
Quarter: 2010Q2

REPORT INFORMATION
  Report Type: 
  Country: None (occurrence: None)
  Receive Date: 20100422
  Receipt Date: 20100421
  Transmission Date: 20101027
  Serious: Yes (Other)
  Sender: FDA-Public Use
  Company Number: SE-SANOFI-AVENTIS-2009SA007429

PATIENT
  Age: 79 Year
  Sex: Female
  Weight: 52 kg

DRUGS (9)
  1. PLAVIX [Suspect]
     Indication: PALPITATIONS
     Route: 048
     Dates: start: 20070301, end: 20070301
  2. PLAVIX [Suspect]
     Route: 048
     Dates: start: 20070301, end: 20090101
  3. TAVANIC [Concomitant]
     Indication: PNEUMONIA
     Route: 065
     Dates: start: 20090701, end: 20090801
  4. LEVOTHYROXINE SODIUM [Concomitant]
     Indication: THYROID DISORDER
  5. ACETYLCYSTEINE [Concomitant]
     Indication: CHRONIC OBSTRUCTIVE PULMONARY DISEASE
  6. PULMICORT [Concomitant]
     Indication: CHRONIC OBSTRUCTIVE PULMONARY DISEASE
  7. BISOLVON [Concomitant]
     Indication: CHRONIC OBSTRUCTIVE PULMONARY DISEASE
  8. SALT SOLUTIONS [Concomitant]
     Indication: CHRONIC OBSTRUCTIVE PULMONARY DISEASE
  9. SALT SOLUTIONS [Concomitant]
     Route: 055

REACTIONS (2)
  - LOSS OF CONSCIOUSNESS [None]
  - OFF LABEL USE [None]
